FAERS Safety Report 7440785-3 (Version None)
Quarter: 2011Q2

REPORT INFORMATION
  Report Type: 
  Country: None (occurrence: None)
  Receive Date: 20110427
  Receipt Date: 20110328
  Transmission Date: 20111010
  Serious: No
  Sender: FDA-Public Use
  Company Number: US-BAYER-2011-029372

PATIENT
  Age: 20 Month
  Sex: Female
  Weight: 9 kg

DRUGS (1)
  1. ALEVE (CAPLET) [Suspect]
     Dosage: UNK, ONCE
     Route: 048
     Dates: start: 20110328

REACTIONS (1)
  - NO ADVERSE EVENT [None]
